FAERS Safety Report 14078947 (Version 1)
Quarter: 2017Q4

REPORT INFORMATION
  Report Type: Spontaneous
  Country: US (occurrence: US)
  Receive Date: 20171012
  Receipt Date: 20171012
  Transmission Date: 20180321
  Serious: No
  Sender: FDA-Public Use
  Company Number: US-MYLANLABS-2017M1025952

PATIENT
  Sex: Female

DRUGS (1)
  1. DICYCLOMINE HYDROCHLORIDE TABLETS, USP [Suspect]
     Active Substance: DICYCLOMINE HYDROCHLORIDE
     Indication: PRODUCT USED FOR UNKNOWN INDICATION
     Dosage: 20 MG, QID FOR 5 DAYS
     Route: 048
     Dates: start: 201704

REACTIONS (3)
  - Tongue discolouration [Unknown]
  - Lip discolouration [Unknown]
  - Tooth discolouration [Unknown]

NARRATIVE: CASE EVENT DATE: 201704
